FAERS Safety Report 20980815 (Version 3)
Quarter: 2022Q3

REPORT INFORMATION
  Report Type: Report from Study
  Country: US (occurrence: US)
  Receive Date: 20220620
  Receipt Date: 20220713
  Transmission Date: 20221026
  Serious: Yes (Hospitalization, Other)
  Sender: FDA-Public Use
  Company Number: US-JNJFOC-20220437847

PATIENT
  Age: 58 Year
  Sex: Female
  Weight: 109.1 kg

DRUGS (8)
  1. SELEXIPAG [Suspect]
     Active Substance: SELEXIPAG
     Indication: Pulmonary arterial hypertension
     Route: 048
  2. SELEXIPAG [Suspect]
     Active Substance: SELEXIPAG
     Indication: Pulmonary hypertension
     Route: 048
  3. SELEXIPAG [Suspect]
     Active Substance: SELEXIPAG
     Route: 048
  4. SELEXIPAG [Suspect]
     Active Substance: SELEXIPAG
     Route: 048
  5. SELEXIPAG [Suspect]
     Active Substance: SELEXIPAG
     Route: 048
  6. XARELTO [Concomitant]
     Active Substance: RIVAROXABAN
  7. TADALAFIL [Concomitant]
     Active Substance: TADALAFIL
  8. OPSUMIT [Concomitant]
     Active Substance: MACITENTAN

REACTIONS (13)
  - Syncope [Unknown]
  - Thrombosis [Unknown]
  - Pneumonia bacterial [Unknown]
  - Pulmonary arterial hypertension [Unknown]
  - COVID-19 [Unknown]
  - Musculoskeletal disorder [Unknown]
  - Headache [Unknown]
  - Pain [Unknown]
  - Arthralgia [Unknown]
  - Back pain [Unknown]
  - Visual impairment [Unknown]
  - Oxygen saturation decreased [Unknown]
  - Fatigue [Unknown]

NARRATIVE: CASE EVENT DATE: 20220611
